FAERS Safety Report 18556746 (Version 2)
Quarter: 2021Q4

REPORT INFORMATION
  Report Type: Spontaneous
  Country: US (occurrence: US)
  Receive Date: 20201128
  Receipt Date: 20211013
  Transmission Date: 20220303
  Serious: No
  Sender: FDA-Public Use
  Company Number: US-SA-2020SA340794

PATIENT
  Age: 23 Year
  Sex: Female
  Weight: 118 kg

DRUGS (6)
  1. DUPIXENT [Suspect]
     Active Substance: DUPILUMAB
     Indication: Dermatitis atopic
     Dosage: 300 MG, QOW
     Route: 058
  2. DUPIXENT [Suspect]
     Active Substance: DUPILUMAB
     Indication: Anal pruritus
  3. DUPIXENT [Suspect]
     Active Substance: DUPILUMAB
     Indication: Prurigo
  4. ALEVE [Concomitant]
     Active Substance: NAPROXEN SODIUM
     Dosage: UNK
  5. CLOBETASOL PROPIONATE [Concomitant]
     Active Substance: CLOBETASOL PROPIONATE
     Dosage: UNK
  6. LO LOESTRIN FE [Concomitant]
     Active Substance: ETHINYL ESTRADIOL\NORETHINDRONE ACETATE
     Dosage: UNK

REACTIONS (11)
  - Skin hypertrophy [Unknown]
  - Skin exfoliation [Recovered/Resolved]
  - Skin exfoliation [Unknown]
  - Injection site urticaria [Recovered/Resolved]
  - Rash papular [Unknown]
  - Dermatitis atopic [Unknown]
  - Eczema [Unknown]
  - Pruritus [Recovered/Resolved]
  - Skin fissures [Recovered/Resolved]
  - Therapeutic response shortened [Unknown]
  - Product use in unapproved indication [Unknown]

NARRATIVE: CASE EVENT DATE: 20200101
